FAERS Safety Report 15366024 (Version 1)
Quarter: 2018Q3

REPORT INFORMATION
  Report Type: Spontaneous
  Country: ES (occurrence: ES)
  Receive Date: 20180910
  Receipt Date: 20180910
  Transmission Date: 20181010
  Serious: Yes (Life-Threatening, Hospitalization)
  Sender: FDA-Public Use
  Company Number: ES-MYLANLABS-2018M1065054

PATIENT
  Age: 52 Year
  Sex: Male

DRUGS (10)
  1. TOBRAMYCIN. [Suspect]
     Active Substance: TOBRAMYCIN
     Indication: PSEUDOMONAS INFECTION
     Route: 042
  2. CIPROFLOXACIN. [Suspect]
     Active Substance: CIPROFLOXACIN
     Indication: NECROTISING SOFT TISSUE INFECTION
     Route: 065
  3. IMIPENEM [Concomitant]
     Active Substance: IMIPENEM
     Indication: NECROTISING SOFT TISSUE INFECTION
     Dosage: TID
     Route: 065
  4. IMIPENEM [Concomitant]
     Active Substance: IMIPENEM
     Indication: PSEUDOMONAS INFECTION
  5. COLISTIN [Suspect]
     Active Substance: COLISTIN
     Indication: NECROTISING SOFT TISSUE INFECTION
     Dosage: 2 MILLION IU TID
     Route: 042
  6. TOBRAMYCIN. [Suspect]
     Active Substance: TOBRAMYCIN
     Indication: NECROTISING SOFT TISSUE INFECTION
     Dosage: TID, MAINTAINED FOR TWO WEEKS
     Route: 065
  7. CIPROFLOXACIN. [Suspect]
     Active Substance: CIPROFLOXACIN
     Indication: PSEUDOMONAS INFECTION
  8. CEFTAZIDIME. [Concomitant]
     Active Substance: CEFTAZIDIME
     Indication: NECROTISING SOFT TISSUE INFECTION
     Dosage: TID, MAINTAINED FOR TWO WEEKS
     Route: 042
  9. COLISTIN [Suspect]
     Active Substance: COLISTIN
     Indication: PSEUDOMONAS INFECTION
  10. CEFTAZIDIME. [Concomitant]
     Active Substance: CEFTAZIDIME
     Indication: PSEUDOMONAS INFECTION

REACTIONS (5)
  - Respiratory arrest [Recovering/Resolving]
  - Metabolic acidosis [Recovering/Resolving]
  - Hyperlactacidaemia [Recovering/Resolving]
  - Hypersensitivity [Unknown]
  - Acute kidney injury [Recovering/Resolving]
